FAERS Safety Report 10683896 (Version 1)
Quarter: 2014Q4

REPORT INFORMATION
  Report Type: Spontaneous
  Country: US (occurrence: US)
  Receive Date: 20141230
  Receipt Date: 20141230
  Transmission Date: 20150529
  Serious: No
  Sender: FDA-Public Use
  Company Number: US-BRISTOL-MYERS SQUIBB COMPANY-BMS-2014-001690

PATIENT
  Sex: Female

DRUGS (7)
  1. VITAMIN D [Concomitant]
     Active Substance: CHOLECALCIFEROL
  2. MULTIPLE VITAMINS [Concomitant]
     Active Substance: VITAMINS
  3. LOSARTAN [Concomitant]
     Active Substance: LOSARTAN
  4. DELTASONE                          /00016001/ [Concomitant]
  5. ORENCIA [Suspect]
     Active Substance: ABATACEPT
     Indication: PRODUCT USED FOR UNKNOWN INDICATION
     Dosage: 125 MG, QWK
     Route: 058
     Dates: start: 20121105
  6. FOLIC ACID. [Concomitant]
     Active Substance: FOLIC ACID
  7. POTASSIUM HYDROXIDE. [Concomitant]
     Active Substance: POTASSIUM HYDROXIDE

REACTIONS (1)
  - Infection [Unknown]
